FAERS Safety Report 22537088 (Version 2)
Quarter: 2023Q2

REPORT INFORMATION
  Report Type: Report from Study
  Country: MX (occurrence: MX)
  Receive Date: 20230608
  Receipt Date: 20230623
  Transmission Date: 20230722
  Serious: Yes (Other)
  Sender: FDA-Public Use
  Company Number: MX-002147023-NVSC2023MX128499

PATIENT
  Age: 77 Year
  Sex: Male
  Weight: 85 kg

DRUGS (2)
  1. ENTRESTO [Suspect]
     Active Substance: SACUBITRIL\VALSARTAN
     Indication: Infarction
     Dosage: 0.5 DOSAGE FORM, BID (100MG) (APPROXIMATELY ONE YEAR AGO)
     Route: 048
  2. ENTRESTO [Suspect]
     Active Substance: SACUBITRIL\VALSARTAN
     Indication: Hypertension
     Dosage: 1 DOSAGE FORM, BID (50MG) (EVERY 12 HOURS)
     Route: 048
     Dates: start: 202007, end: 20230414

REACTIONS (3)
  - Renal impairment [Not Recovered/Not Resolved]
  - Wrong technique in product usage process [Unknown]
  - Product use in unapproved indication [Recovered/Resolved]

NARRATIVE: CASE EVENT DATE: 20200701
